FAERS Safety Report 5715016-2 (Version None)
Quarter: 2008Q2

REPORT INFORMATION
  Report Type: 
  Country: None (occurrence: None)
  Receive Date: 20080423
  Receipt Date: 20080416
  Transmission Date: 20081010
  Serious: Yes (Hospitalization, Other)
  Sender: FDA-Public Use
  Company Number: PHBS2008CH03065

PATIENT
  Age: 49 Year
  Sex: Male

DRUGS (17)
  1. SIMULECT [Suspect]
     Indication: LIVER TRANSPLANT
     Dosage: 20 MG, ONCE/SINGLE
     Dates: start: 20080206, end: 20080206
  2. SIMULECT [Suspect]
     Dosage: 20 MG, ONCE/SINGLE
     Dates: start: 20080210, end: 20080210
  3. POLYMYCIN B SULFATE [Concomitant]
     Dates: start: 20080206
  4. NEOMYCIN [Concomitant]
     Dates: start: 20080206
  5. DAFALGAN [Concomitant]
     Dosage: 2000 MG/D
     Dates: start: 20080206
  6. HEPARIN [Concomitant]
     Dates: start: 20080206, end: 20080213
  7. SOLU-MEDROL [Concomitant]
     Route: 042
     Dates: start: 20080206
  8. NEXIUM [Concomitant]
     Dosage: 40 MG/D
     Dates: start: 20080206
  9. ADALAT [Concomitant]
     Dates: start: 20080206
  10. ALBUMIN (HUMAN) [Concomitant]
     Dosage: 600 G/D
     Route: 042
  11. MORPHINE HCL ELIXIR [Concomitant]
  12. HEPATECT [Suspect]
     Indication: LIVER TRANSPLANT
     Dosage: 5000 IU/D
     Route: 065
     Dates: start: 20080206, end: 20080212
  13. PROGRAF [Suspect]
     Indication: LIVER TRANSPLANT
     Dosage: 4 MG/D
     Route: 065
     Dates: start: 20080206
  14. CELLCEPT [Suspect]
     Indication: LIVER TRANSPLANT
     Dosage: 2 G/D
     Route: 065
     Dates: start: 20080206
  15. PROSTIN VR PEDIATRIC [Suspect]
     Indication: LIVER TRANSPLANT
     Route: 065
     Dates: start: 20080206, end: 20080212
  16. ZEFFIX [Concomitant]
     Dosage: 100 MG/D
     Dates: start: 20080206
  17. MYCOSTATIN [Concomitant]
     Dosage: 100000 IU/D
     Dates: start: 20080206

REACTIONS (4)
  - C-REACTIVE PROTEIN INCREASED [None]
  - HEPATIC HAEMATOMA [None]
  - PYREXIA [None]
  - SYSTEMIC INFLAMMATORY RESPONSE SYNDROME [None]
